FAERS Safety Report 23522741 (Version 1)
Quarter: 2024Q1

REPORT INFORMATION
  Report Type: 
  Country: None (occurrence: None)
  Receive Date: 20240214
  Receipt Date: 20240214
  Transmission Date: 20240410
  Serious: No
  Sender: FDA-Public Use
  Company Number: ROCHE-3509750

PATIENT

DRUGS (1)
  1. OCREVUS [Suspect]
     Active Substance: OCRELIZUMAB
     Dates: start: 202001

REACTIONS (2)
  - COVID-19 [None]
  - Herpes zoster [None]

NARRATIVE: CASE EVENT DATE: 20200101
